FAERS Safety Report 9388385 (Version 1)
Quarter: 2013Q3

REPORT INFORMATION
  Report Type: Spontaneous
  Country: US (occurrence: US)
  Receive Date: 20130708
  Receipt Date: 20130708
  Transmission Date: 20140515
  Serious: No
  Sender: FDA-Public Use
  Company Number: US-009507513-1307USA003286

PATIENT
  Sex: Male

DRUGS (2)
  1. DR. SCHOLLS CALLUS REMOVERS [Suspect]
     Indication: HYPERKERATOSIS
     Dosage: UNK, UNKNOWN
     Route: 061
  2. DR. SCHOLLS CALLUS REMOVERS [Suspect]
     Dosage: UNK, UNKNOWN
     Route: 061

REACTIONS (1)
  - Application site pain [Unknown]
